FAERS Safety Report 8515638-X (Version None)
Quarter: 2012Q3

REPORT INFORMATION
  Report Type: 
  Country: None (occurrence: None)
  Receive Date: 20120717
  Receipt Date: 20120712
  Transmission Date: 20120928
  Serious: Yes (Disabling, Other)
  Sender: FDA-Public Use
  Company Number: PHHY2012CA043625

PATIENT
  Sex: Male

DRUGS (9)
  1. CRESTOR [Concomitant]
     Dosage: UNK UKN, UNK
  2. TRAZODONE HYDROCHLORIDE [Concomitant]
     Dosage: UNK UKN, UNK
  3. WELLBUTRIN XL [Concomitant]
     Dosage: UNK UKN, UNK
  4. METFORMIN HYDROCHLORIDE [Concomitant]
     Dosage: UNK UKN, UNK
  5. MIRTAZAPINE [Concomitant]
     Dosage: UNK UKN, UNK
  6. OMEPRAZOLE [Concomitant]
     Dosage: UNK UKN, UNK
  7. CLOZARIL [Suspect]
     Indication: SCHIZOPHRENIA
     Dosage: 125 MG, UNK
     Route: 048
     Dates: start: 20080619, end: 20120518
  8. FLUVOXAMINE MALEATE [Concomitant]
     Dosage: UNK UKN, UNK
  9. QUETIAPINE [Concomitant]
     Dosage: UNK UKN, UNK

REACTIONS (1)
  - METABOLIC SYNDROME [None]
